FAERS Safety Report 9379681 (Version 1)
Quarter: 2013Q2

REPORT INFORMATION
  Report Type: Spontaneous
  Country: US (occurrence: None)
  Receive Date: 20130627
  Receipt Date: 20130627
  Transmission Date: 20140414
  Serious: Yes (Hospitalization)
  Sender: FDA-Public Use
  Company Number: US-ZYDUS-001504

PATIENT
  Age: 73 Year
  Sex: Male

DRUGS (1)
  1. TOPIRAMATE (TOPIRAMATE) [Suspect]
     Indication: HEADACHE

REACTIONS (3)
  - Vision blurred [None]
  - Headache [None]
  - Disorientation [None]
